FAERS Safety Report 19061755 (Version 2)
Quarter: 2021Q2

REPORT INFORMATION
  Report Type: Report from Study
  Country: US (occurrence: US)
  Receive Date: 20210325
  Receipt Date: 20210513
  Transmission Date: 20210717
  Serious: Yes (Other)
  Sender: FDA-Public Use
  Company Number: US-SEATTLE GENETICS-2021SGN01707

PATIENT
  Age: 49 Year
  Sex: Male
  Weight: 95 kg

DRUGS (9)
  1. NIVOLUMAB [Suspect]
     Active Substance: NIVOLUMAB
     Indication: HODGKIN^S DISEASE
     Dosage: 240 MG, QCYCLE
     Route: 042
     Dates: start: 20200508, end: 20201009
  2. DOXORUBICIN [Suspect]
     Active Substance: DOXORUBICIN
     Indication: HODGKIN^S DISEASE
     Dosage: 25 MG/M2, QCYCLE
     Route: 042
     Dates: start: 20200508, end: 20201009
  3. PREDNISONE. [Concomitant]
     Active Substance: PREDNISONE
     Indication: TOTAL LUNG CAPACITY DECREASED
     Dosage: 20 MG
     Dates: start: 20200311
  4. DACARBAZINE. [Suspect]
     Active Substance: DACARBAZINE
     Indication: HODGKIN^S DISEASE
     Dosage: 375 MG/KG, QCYCLE
     Route: 042
     Dates: start: 20200508, end: 20201009
  5. BRENTUXIMAB VEDOTIN [Suspect]
     Active Substance: BRENTUXIMAB VEDOTIN
     Indication: HODGKIN^S DISEASE
     Dosage: 1.2 MG/KG, QCYCLE
     Route: 042
     Dates: start: 20200508, end: 20201009
  6. ELIQUIS [Concomitant]
     Active Substance: APIXABAN
     Indication: EMBOLISM
     Dosage: 5 MG
     Dates: start: 20200220
  7. LOPRESSOR [Concomitant]
     Active Substance: METOPROLOL TARTRATE
     Indication: HYPERTENSION
     Dosage: 50 MG
     Dates: start: 20200409
  8. LISINOPRIL. [Concomitant]
     Active Substance: LISINOPRIL
     Indication: HYPERTENSION
     Dosage: 10 MG
     Dates: start: 20210101
  9. PEGFILGRASTIM [Concomitant]
     Active Substance: PEGFILGRASTIM
     Indication: HODGKIN^S DISEASE
     Dosage: 6 MG, QCYCLE
     Route: 058
     Dates: start: 20200508, end: 20201009

REACTIONS (1)
  - Vital capacity abnormal [Not Recovered/Not Resolved]

NARRATIVE: CASE EVENT DATE: 20210317
